FAERS Safety Report 8710928 (Version 2)
Quarter: 2013Q4

REPORT INFORMATION
  Report Type: Report from Study
  Country: BR (occurrence: BR)
  Receive Date: 20120807
  Receipt Date: 20131028
  Transmission Date: 20140711
  Serious: Yes (Hospitalization, Disabling, Other)
  Sender: FDA-Public Use
  Company Number: BR-US-EMD SERONO, INC.-7151222

PATIENT
  Sex: Male

DRUGS (4)
  1. REBIF [Suspect]
     Indication: MULTIPLE SCLEROSIS
     Dates: start: 20021004, end: 20040101
  2. REBIF [Suspect]
     Dates: start: 20040101
  3. VITAMIN C [Concomitant]
     Indication: PRODUCT USED FOR UNKNOWN INDICATION
  4. VITAMIN D [Concomitant]
     Indication: PRODUCT USED FOR UNKNOWN INDICATION

REACTIONS (6)
  - Urinary tract infection [Recovered/Resolved]
  - Choking [Unknown]
  - Hemiplegia [Not Recovered/Not Resolved]
  - Teeth brittle [Unknown]
  - Memory impairment [Unknown]
  - Apathy [Not Recovered/Not Resolved]
